FAERS Safety Report 25146667 (Version 3)
Quarter: 2025Q2

REPORT INFORMATION
  Report Type: Spontaneous
  Country: TW (occurrence: TW)
  Receive Date: 20250401
  Receipt Date: 20250415
  Transmission Date: 20250716
  Serious: Yes (Other)
  Sender: ALEXION PHARMACEUTICALS
  Company Number: TW-AstraZeneca-CH-00835805A

PATIENT
  Age: 70 Year

DRUGS (1)
  1. TAGRISSO [Suspect]
     Active Substance: OSIMERTINIB
     Indication: Lung neoplasm malignant
     Dosage: 80 MILLIGRAM, QD

REACTIONS (11)
  - Diarrhoea [Not Recovered/Not Resolved]
  - Dry skin [Recovered/Resolved]
  - Acne [Not Recovered/Not Resolved]
  - Herpes zoster [Not Recovered/Not Resolved]
  - Paronychia [Unknown]
  - Melaena [Unknown]
  - Pruritus [Recovered/Resolved]
  - Vascular rupture [Recovered/Resolved]
  - Blood pressure increased [Recovered/Resolved]
  - Tachycardia [Recovered/Resolved]
  - Nasopharyngitis [Unknown]
